FAERS Safety Report 20450579 (Version 2)
Quarter: 2025Q2

REPORT INFORMATION
  Report Type: Spontaneous
  Country: US (occurrence: US)
  Receive Date: 20220209
  Receipt Date: 20250526
  Transmission Date: 20250716
  Serious: No
  Sender: KYOWA
  Company Number: US-KYOWAKIRIN-2022BKK001155

PATIENT

DRUGS (8)
  1. CRYSVITA [Suspect]
     Active Substance: BUROSUMAB-TWZA
     Indication: Rickets
     Dosage: 10 MG, EVERY 2 WEEKS
     Route: 058
     Dates: start: 202111
  2. CRYSVITA [Suspect]
     Active Substance: BUROSUMAB-TWZA
     Indication: Phosphorus metabolism disorder
  3. CRYSVITA [Suspect]
     Active Substance: BUROSUMAB-TWZA
     Indication: Hereditary hypophosphataemic rickets
  4. CRYSVITA [Suspect]
     Active Substance: BUROSUMAB-TWZA
     Indication: Calcium metabolism disorder
  5. CRYSVITA [Suspect]
     Active Substance: BUROSUMAB-TWZA
     Indication: Rickets
     Dosage: 90 MG, 1X/MONTH
     Route: 058
     Dates: start: 202104
  6. CRYSVITA [Suspect]
     Active Substance: BUROSUMAB-TWZA
     Indication: Phosphorus metabolism disorder
     Dosage: 60 MG, EVERY 2 WEEKS
     Route: 058
     Dates: start: 202111
  7. CRYSVITA [Suspect]
     Active Substance: BUROSUMAB-TWZA
     Indication: Hereditary hypophosphataemic rickets
  8. CRYSVITA [Suspect]
     Active Substance: BUROSUMAB-TWZA
     Indication: Calcium metabolism disorder

REACTIONS (2)
  - Weight increased [Unknown]
  - Therapy interrupted [Unknown]
